FAERS Safety Report 4297312-1 (Version None)
Quarter: 2004Q1

REPORT INFORMATION
  Report Type: 
  Country: None (occurrence: None)
  Receive Date: 20040212
  Receipt Date: 20030513
  Transmission Date: 20041129
  Serious: Yes (Hospitalization)
  Sender: FDA-Public Use
  Company Number: A03200300949

PATIENT
  Age: 48 Year
  Sex: Female
  Weight: 56.6996 kg

DRUGS (2)
  1. AMBIEN [Suspect]
     Indication: INSOMNIA
     Dosage: 40 MG HS - ORAL
     Route: 048
     Dates: start: 19970101
  2. METOPROLOL SUCCINATE [Concomitant]

REACTIONS (2)
  - DRUG DEPENDENCE [None]
  - DRUG INEFFECTIVE [None]
